FAERS Safety Report 25914424 (Version 2)
Quarter: 2025Q4

REPORT INFORMATION
  Report Type: Spontaneous
  Country: IN (occurrence: IN)
  Receive Date: 20251013
  Receipt Date: 20251029
  Transmission Date: 20260118
  Serious: Yes (Life-Threatening, Hospitalization, Other)
  Sender: ALKEM
  Company Number: None

PATIENT
  Age: 7 Day
  Weight: 0.001 kg

DRUGS (2)
  1. SILDENAFIL [Suspect]
     Active Substance: SILDENAFIL
     Indication: Newborn persistent pulmonary hypertension
     Dosage: 0.5 MILLIGRAM/KILOGRAM, TID
     Route: 048
  2. SILDENAFIL [Suspect]
     Active Substance: SILDENAFIL
     Dosage: UNK (RECHALLENGE DOSE)
     Route: 065

REACTIONS (3)
  - Pulmonary congestion [Recovering/Resolving]
  - Respiratory distress [Recovering/Resolving]
  - Condition aggravated [Recovering/Resolving]
